FAERS Safety Report 5196689-2 (Version None)
Quarter: 2007Q1

REPORT INFORMATION
  Report Type: 
  Country: None (occurrence: None)
  Receive Date: 20070103
  Receipt Date: 20061226
  Transmission Date: 20070707
  Serious: Yes (Hospitalization)
  Sender: FDA-Public Use
  Company Number: FR-AVENTIS-200614552FR

PATIENT
  Age: 47 Year
  Sex: Male

DRUGS (2)
  1. FLAGYL [Suspect]
     Indication: TOOTH EXTRACTION
     Route: 048
  2. CLAMOXYL                           /00249601/ [Suspect]
     Indication: TOOTH EXTRACTION

REACTIONS (2)
  - DERMATITIS EXFOLIATIVE [None]
  - PYREXIA [None]
